FAERS Safety Report 5605337-6 (Version None)
Quarter: 2008Q1

REPORT INFORMATION
  Report Type: 
  Country: None (occurrence: None)
  Receive Date: 20080129
  Receipt Date: 20080116
  Transmission Date: 20080703
  Serious: Yes (Other)
  Sender: FDA-Public Use
  Company Number: US-PFIZER INC-2008006105

PATIENT
  Sex: Female
  Weight: 63.636 kg

DRUGS (6)
  1. LIPITOR [Suspect]
  2. CHANTIX [Suspect]
     Indication: SMOKING CESSATION THERAPY
  3. FORADIL [Concomitant]
  4. PREVACID [Concomitant]
  5. ACTONEL [Concomitant]
  6. ATROVENT [Concomitant]

REACTIONS (4)
  - FEMORAL ARTERY OCCLUSION [None]
  - PAIN IN EXTREMITY [None]
  - RESTLESS LEGS SYNDROME [None]
  - SLEEP DISORDER [None]
